FAERS Safety Report 19649927 (Version 1)
Quarter: 2021Q3

REPORT INFORMATION
  Report Type: Spontaneous
  Country: US (occurrence: US)
  Receive Date: 20210802
  Receipt Date: 20210802
  Transmission Date: 20211014
  Serious: No
  Sender: FDA-Public Use
  Company Number: US-RVL_PHARMACEUTICALS-USA-POI0573202100134

PATIENT
  Age: 67 Year
  Sex: Female

DRUGS (2)
  1. UPNEEQ [Suspect]
     Active Substance: OXYMETAZOLINE HYDROCHLORIDE
     Dosage: 1 GTT, OD AND 2 GTT OS
     Route: 047
     Dates: start: 20210329, end: 20210329
  2. UPNEEQ [Suspect]
     Active Substance: OXYMETAZOLINE HYDROCHLORIDE
     Indication: EYELID PTOSIS
     Dosage: OU
     Route: 047
     Dates: start: 202103, end: 20210328

REACTIONS (4)
  - Eye pain [Recovered/Resolved]
  - Conjunctival hyperaemia [Recovering/Resolving]
  - Off label use [Recovered/Resolved]
  - Photophobia [Recovered/Resolved]

NARRATIVE: CASE EVENT DATE: 20210329
